FAERS Safety Report 6714165-X (Version None)
Quarter: 2010Q2

REPORT INFORMATION
  Report Type: 
  Country: None (occurrence: None)
  Receive Date: 20100503
  Receipt Date: 20100420
  Transmission Date: 20101027
  Serious: Yes (Hospitalization)
  Sender: FDA-Public Use
  Company Number: 8051995

PATIENT
  Sex: Male

DRUGS (7)
  1. KEPPRA [Suspect]
     Dosage: (250 MG BID)
     Dates: start: 20090701, end: 20090819
  2. RIFADIN [Suspect]
     Dosage: (900 MG BID ORAL)
     Route: 048
     Dates: start: 20090731, end: 20090816
  3. TARGOCID [Suspect]
     Dosage: (600 MG SUBCUTANEOUS)
     Route: 058
     Dates: start: 20090807, end: 20090819
  4. LIORESAL [Suspect]
     Dates: start: 20090805
  5. IMOVANE (IMOVANE) (NOT SPECIFIED) [Suspect]
     Dosage: (0.9 ML BID)
  6. KARDEGIC /00002703/ (KARDEGIC) (NOT SPECIFIED) [Suspect]
     Dosage: (160 MG)
  7. LOVENOX [Suspect]
     Dates: start: 20090701

REACTIONS (3)
  - ANAEMIA [None]
  - PURPURA [None]
  - THROMBOCYTOPENIA [None]
